FAERS Safety Report 6918161-9 (Version None)
Quarter: 2010Q3

REPORT INFORMATION
  Report Type: 
  Country: None (occurrence: None)
  Receive Date: 20100806
  Receipt Date: 20100722
  Transmission Date: 20110219
  Serious: Yes (Other)
  Sender: FDA-Public Use
  Company Number: ACO_01559_2010

PATIENT
  Age: 57 Year
  Sex: Female
  Weight: 65.7716 kg

DRUGS (10)
  1. AMPYRA [Suspect]
     Indication: GAIT DISTURBANCE
     Dosage: 10 MG BID ORAL
     Route: 048
     Dates: start: 20100721, end: 20100721
  2. LISINOPRIL [Concomitant]
  3. BACLOFEN [Concomitant]
  4. LEXAPRO [Concomitant]
  5. WELLBUTRIN [Concomitant]
  6. MINOCYCLINE HCL [Concomitant]
  7. ACYCLOVIR [Concomitant]
  8. AMANTADINE [Concomitant]
  9. OXYBUTYNIN [Concomitant]
  10. AMBIEN [Concomitant]

REACTIONS (5)
  - BLOOD PRESSURE DECREASED [None]
  - DIZZINESS [None]
  - DYSPNOEA [None]
  - HEART RATE INCREASED [None]
  - PALPITATIONS [None]
